FAERS Safety Report 16936749 (Version 2)
Quarter: 2019Q4

REPORT INFORMATION
  Report Type: Report from Study
  Country: CA (occurrence: CA)
  Receive Date: 20191018
  Receipt Date: 20191030
  Transmission Date: 20200122
  Serious: Yes (Other)
  Sender: FDA-Public Use
  Company Number: CA-ROCHE-1413704

PATIENT
  Age: 61 Year
  Sex: Female

DRUGS (14)
  1. OMEGA 3-6-9 [FISH OIL] [Concomitant]
  2. CONTACT LAXATIVES [Concomitant]
     Active Substance: UNSPECIFIED INGREDIENT
  3. RITUXAN [Suspect]
     Active Substance: RITUXIMAB
     Indication: RHEUMATOID ARTHRITIS
     Dosage: RITUXIMAB DOSE WAS RECEIVED ON 31/MAR/2016 AND 05/OCT/2016
     Route: 042
     Dates: start: 20140603
  4. DIPHENHYDRAMINE. [Concomitant]
     Active Substance: DIPHENHYDRAMINE
     Indication: PREMEDICATION
     Route: 048
     Dates: start: 20140603
  5. ATIVAN [Concomitant]
     Active Substance: LORAZEPAM
     Indication: PREMEDICATION
     Route: 048
     Dates: start: 20140618
  6. PREDNISONE. [Concomitant]
     Active Substance: PREDNISONE
     Indication: PREMEDICATION
     Route: 048
     Dates: start: 20140603
  7. MELOXICAM. [Concomitant]
     Active Substance: MELOXICAM
  8. BACLOFEN. [Concomitant]
     Active Substance: BACLOFEN
     Indication: PREMEDICATION
     Route: 048
     Dates: start: 20141204
  9. LOSARTAN. [Concomitant]
     Active Substance: LOSARTAN
  10. HCTZ [Concomitant]
     Active Substance: HYDROCHLOROTHIAZIDE
  11. FOLIC ACID. [Concomitant]
     Active Substance: FOLIC ACID
  12. SULFASALAZINE. [Concomitant]
     Active Substance: SULFASALAZINE
  13. TYLENOL ARTHRITIS PAIN [Concomitant]
     Active Substance: ACETAMINOPHEN
     Route: 065
  14. ACETAMINOPHEN. [Concomitant]
     Active Substance: ACETAMINOPHEN
     Indication: PREMEDICATION
     Route: 048
     Dates: start: 20140603

REACTIONS (18)
  - Blood pressure systolic increased [Unknown]
  - Blood pressure fluctuation [Unknown]
  - Infusion related reaction [Unknown]
  - Oral herpes [Unknown]
  - Cough [Unknown]
  - Sneezing [Not Recovered/Not Resolved]
  - Blood pressure fluctuation [Unknown]
  - White coat hypertension [Unknown]
  - Blood pressure diastolic abnormal [Unknown]
  - Body temperature increased [Unknown]
  - Fatigue [Unknown]
  - Anxiety [Unknown]
  - Fatigue [Unknown]
  - Oxygen saturation decreased [Unknown]
  - Dysphonia [Not Recovered/Not Resolved]
  - Blood pressure systolic increased [Unknown]
  - Blood pressure increased [Unknown]
  - Nasopharyngitis [Not Recovered/Not Resolved]

NARRATIVE: CASE EVENT DATE: 20140603
